FAERS Safety Report 20334981 (Version 21)
Quarter: 2025Q2

REPORT INFORMATION
  Report Type: Report from Study
  Country: US (occurrence: US)
  Receive Date: 20220114
  Receipt Date: 20250626
  Transmission Date: 20250717
  Serious: Yes (Hospitalization, Other)
  Sender: RANBAXY
  Company Number: US-SUN PHARMACEUTICAL INDUSTRIES LTD-2022R1-323232

PATIENT
  Age: 73 Year
  Sex: Male
  Weight: 124.72 kg

DRUGS (23)
  1. TILDRAKIZUMAB [Suspect]
     Active Substance: TILDRAKIZUMAB
     Indication: Psoriasis
     Route: 058
     Dates: start: 20200609, end: 20230713
  2. TILDRAKIZUMAB [Suspect]
     Active Substance: TILDRAKIZUMAB
     Route: 058
     Dates: start: 20200609, end: 20210928
  3. TILDRAKIZUMAB [Suspect]
     Active Substance: TILDRAKIZUMAB
     Route: 058
     Dates: start: 20211123
  4. ASPIRIN [Concomitant]
     Active Substance: ASPIRIN
     Indication: Product used for unknown indication
     Dosage: 81.00 MILLIGRAM, QD
     Route: 065
  5. COVID-19 vaccination [Concomitant]
     Indication: Product used for unknown indication
     Route: 065
     Dates: start: 20210301
  6. COVID-19 vaccination [Concomitant]
     Route: 065
     Dates: start: 20210331
  7. COVID-19 vaccination [Concomitant]
     Route: 065
     Dates: start: 20211211
  8. CRESTOR [Concomitant]
     Active Substance: ROSUVASTATIN CALCIUM
     Indication: Product used for unknown indication
     Route: 065
  9. ELIQUIS [Concomitant]
     Active Substance: APIXABAN
     Indication: Product used for unknown indication
     Route: 065
  10. FOLIC ACID [Concomitant]
     Active Substance: FOLIC ACID
     Indication: Product used for unknown indication
     Route: 065
  11. IRBESARTAN [Concomitant]
     Active Substance: IRBESARTAN
     Indication: Product used for unknown indication
     Dosage: 300 MILLIGRAM, QD
     Route: 065
  12. JANUMET [Concomitant]
     Active Substance: METFORMIN HYDROCHLORIDE\SITAGLIPTIN PHOSPHATE
     Indication: Product used for unknown indication
     Route: 065
  13. LOSARTAN [Concomitant]
     Active Substance: LOSARTAN
     Indication: Product used for unknown indication
     Route: 065
  14. TOPROL XL [Concomitant]
     Active Substance: METOPROLOL SUCCINATE
     Indication: Product used for unknown indication
     Route: 065
  15. FINASTERIDE [Concomitant]
     Active Substance: FINASTERIDE
     Indication: Product used for unknown indication
     Route: 065
  16. LISINOPRIL [Concomitant]
     Active Substance: LISINOPRIL
     Indication: Product used for unknown indication
     Route: 065
  17. FLONASE [Concomitant]
     Active Substance: FLUTICASONE PROPIONATE
     Indication: Product used for unknown indication
     Route: 065
  18. METOPROLOL [Concomitant]
     Active Substance: METOPROLOL
     Indication: Product used for unknown indication
     Route: 065
  19. METFORMIN [Concomitant]
     Active Substance: METFORMIN HYDROCHLORIDE
     Indication: Product used for unknown indication
     Dosage: 500 MILLIGRAM, QD
     Route: 065
     Dates: start: 20190822
  20. GLIMEPIRIDE [Concomitant]
     Active Substance: GLIMEPIRIDE
     Indication: Product used for unknown indication
     Dosage: 2 MILLIGRAM, QD
     Route: 065
  21. HYDROCHLOROTHIAZIDE [Concomitant]
     Active Substance: HYDROCHLOROTHIAZIDE
     Indication: Product used for unknown indication
     Dosage: 12.50 MILLIGRAM, QD
     Route: 065
  22. ROSUVASTATIN [Concomitant]
     Active Substance: ROSUVASTATIN
     Indication: Cholesterosis
     Route: 065
     Dates: start: 20190822
  23. METOPROLOL SUCCINATE [Concomitant]
     Active Substance: METOPROLOL SUCCINATE
     Indication: Hypertension
     Route: 065
     Dates: start: 20190822

REACTIONS (23)
  - Cardiac operation [Recovered/Resolved]
  - Acute myocardial infarction [Recovered/Resolved]
  - Pleural effusion [Not Recovered/Not Resolved]
  - Sepsis [Recovered/Resolved]
  - Large intestinal polypectomy [Unknown]
  - Diverticulum intestinal [Unknown]
  - Haemorrhoids [Unknown]
  - Aortic valve incompetence [Recovered/Resolved]
  - Prosthetic valve endocarditis [Unknown]
  - Acute respiratory failure [Unknown]
  - Deep vein thrombosis [Recovered/Resolved]
  - Chronic left ventricular failure [Unknown]
  - Atrial fibrillation [Recovered/Resolved]
  - Urinary tract infection [Unknown]
  - Splenic infarction [Recovered/Resolved]
  - Hospitalisation [Unknown]
  - Cystitis [Recovered/Resolved]
  - Haematuria [Recovered/Resolved]
  - Benign prostatic hyperplasia [Unknown]
  - COVID-19 pneumonia [Unknown]
  - Microcytic anaemia [Unknown]
  - Adrenal mass [Unknown]
  - Renal cyst [Unknown]

NARRATIVE: CASE EVENT DATE: 20210914
